FAERS Safety Report 6931802-5 (Version None)
Quarter: 2010Q3

REPORT INFORMATION
  Report Type: 
  Country: None (occurrence: None)
  Receive Date: 20100819
  Receipt Date: 20100810
  Transmission Date: 20110219
  Serious: No
  Sender: FDA-Public Use
  Company Number: US-BIOGENIDEC-2010BI027396

PATIENT
  Sex: Female

DRUGS (4)
  1. AVONEX [Suspect]
     Indication: MULTIPLE SCLEROSIS
     Route: 030
     Dates: start: 19980101, end: 20040801
  2. AVONEX [Suspect]
     Route: 030
     Dates: start: 20050601, end: 20070701
  3. AVONEX [Suspect]
     Route: 030
     Dates: start: 20080601
  4. NICOTINE [Concomitant]
     Indication: TOBACCO USER
     Route: 062
     Dates: start: 20100101

REACTIONS (5)
  - ANXIETY [None]
  - BACK PAIN [None]
  - FATIGUE [None]
  - GAIT DISTURBANCE [None]
  - MULTIPLE SCLEROSIS RELAPSE [None]
